FAERS Safety Report 10596914 (Version 3)
Quarter: 2015Q1

REPORT INFORMATION
  Report Type: Spontaneous
  Country: US (occurrence: US)
  Receive Date: 20141120
  Receipt Date: 20150212
  Transmission Date: 20150720
  Serious: No
  Sender: FDA-Public Use
  Company Number: US-GLAXOSMITHKLINE-A1088448A

PATIENT

DRUGS (2)
  1. GABAPENTIN. [Concomitant]
     Active Substance: GABAPENTIN
  2. VENTOLIN [Suspect]
     Active Substance: ALBUTEROL SULFATE
     Indication: ASTHMA
     Dates: start: 2010

REACTIONS (5)
  - Drug ineffective [Unknown]
  - Medication error [Unknown]
  - Product quality issue [Unknown]
  - Dyspnoea [Unknown]
  - Overdose [Unknown]
